FAERS Safety Report 12412500 (Version 17)
Quarter: 2017Q1

REPORT INFORMATION
  Report Type: Report from Study
  Country: CA (occurrence: CA)
  Receive Date: 20160527
  Receipt Date: 20170327
  Transmission Date: 20170428
  Serious: Yes (Other)
  Sender: FDA-Public Use
  Company Number: CA-SA-2016SA048029

PATIENT
  Age: 30 Year
  Sex: Female

DRUGS (10)
  1. ACYCLOVIR. [Concomitant]
     Active Substance: ACYCLOVIR
     Indication: PREMEDICATION
     Route: 048
     Dates: start: 20160307
  2. LEMTRADA [Suspect]
     Active Substance: ALEMTUZUMAB
     Indication: RELAPSING-REMITTING MULTIPLE SCLEROSIS
     Route: 041
     Dates: start: 20160307, end: 20160309
  3. SOLU-MEDROL [Concomitant]
     Active Substance: METHYLPREDNISOLONE SODIUM SUCCINATE
     Indication: PREMEDICATION
     Route: 042
     Dates: start: 20160307
  4. RANITIDINE. [Concomitant]
     Active Substance: RANITIDINE
     Indication: PREMEDICATION
     Route: 048
     Dates: end: 20160306
  5. MARVELON [Concomitant]
     Active Substance: DESOGESTREL\ETHINYL ESTRADIOL
     Route: 048
  6. REACTINE [Concomitant]
     Active Substance: CETIRIZINE HYDROCHLORIDE
     Indication: PREMEDICATION
     Route: 048
  7. OMEGA 3 [Concomitant]
     Active Substance: OMEGA-3 FATTY ACIDS
     Route: 048
  8. VITAMIN D [Concomitant]
     Active Substance: CHOLECALCIFEROL
     Route: 048
  9. LEMTRADA [Suspect]
     Active Substance: ALEMTUZUMAB
     Indication: RELAPSING-REMITTING MULTIPLE SCLEROSIS
     Route: 041
     Dates: start: 20160311, end: 20160311
  10. LEMTRADA [Suspect]
     Active Substance: ALEMTUZUMAB
     Indication: RELAPSING-REMITTING MULTIPLE SCLEROSIS
     Route: 041
     Dates: start: 20160314, end: 20160314

REACTIONS (26)
  - Lymphocyte count decreased [Recovered/Resolved]
  - Haematochezia [Recovered/Resolved]
  - Rash [Recovered/Resolved]
  - Contusion [Recovering/Resolving]
  - Red blood cells urine [Recovered/Resolved]
  - Pruritus [Recovered/Resolved]
  - Pain in extremity [Recovered/Resolved]
  - Myelocyte count increased [Unknown]
  - Urine ketone body present [Recovered/Resolved]
  - Myelocyte percentage increased [Unknown]
  - Neutrophil percentage increased [Recovered/Resolved]
  - Monocyte percentage increased [Recovered/Resolved]
  - Headache [Recovered/Resolved]
  - Crystal urine present [Unknown]
  - Blood urine present [Not Recovered/Not Resolved]
  - Erythema [Not Recovered/Not Resolved]
  - Lymphocyte percentage decreased [Not Recovered/Not Resolved]
  - Bacterial test [Recovered/Resolved]
  - Urine leukocyte esterase [Recovered/Resolved]
  - Urine analysis abnormal [Not Recovered/Not Resolved]
  - Cardiac discomfort [Recovered/Resolved]
  - Gastrooesophageal reflux disease [Recovered/Resolved]
  - White blood cell count decreased [Recovered/Resolved]
  - Fatigue [Recovering/Resolving]
  - Band neutrophil percentage increased [Unknown]
  - Insomnia [Recovered/Resolved]

NARRATIVE: CASE EVENT DATE: 201603
